FAERS Safety Report 24392510 (Version 1)
Quarter: 2024Q4

REPORT INFORMATION
  Report Type: Spontaneous
  Country: US (occurrence: US)
  Receive Date: 20241003
  Receipt Date: 20241003
  Transmission Date: 20250114
  Serious: Yes (Death, Other)
  Sender: BAYER
  Company Number: US-BAYER-2024A140018

PATIENT
  Age: 69 Year
  Sex: Female

DRUGS (1)
  1. ASPIRIN [Suspect]
     Active Substance: ASPIRIN
     Indication: Acute coronary syndrome
     Dosage: UNK

REACTIONS (3)
  - Haemothorax [Fatal]
  - Pericardial effusion [Fatal]
  - Cardiac arrest [Fatal]
